FAERS Safety Report 8463474 (Version 5)
Quarter: 2013Q3

REPORT INFORMATION
  Report Type: Spontaneous
  Country: US (occurrence: US)
  Receive Date: 20120316
  Receipt Date: 20130802
  Transmission Date: 20140515
  Serious: Yes (Other)
  Sender: FDA-Public Use
  Company Number: CHPA2012US004673

PATIENT
  Age: 63 Year
  Sex: Female
  Weight: 91.16 kg

DRUGS (2)
  1. HABITROL [Suspect]
     Dosage: 21 MG, QD
     Route: 062
     Dates: start: 20120120, end: 20120121
  2. INSULIN [Concomitant]
     Indication: DIABETES MELLITUS
     Dosage: UNK, UNK

REACTIONS (12)
  - Thermal burn [Recovered/Resolved]
  - Blood glucose increased [Recovered/Resolved]
  - Concomitant disease aggravated [Recovered/Resolved]
  - Scar [Not Recovered/Not Resolved]
  - Infection [Recovered/Resolved]
  - Rash pustular [Recovered/Resolved]
  - Blister [Recovered/Resolved]
  - Fear [Recovered/Resolved]
  - Crying [Recovered/Resolved]
  - Anxiety [Recovered/Resolved]
  - Impaired healing [Recovered/Resolved]
  - Pain [Recovered/Resolved]
